FAERS Safety Report 17886494 (Version 2)
Quarter: 2020Q3

REPORT INFORMATION
  Report Type: Report from Study
  Country: US (occurrence: US)
  Receive Date: 20200611
  Receipt Date: 20200825
  Transmission Date: 20201103
  Serious: No
  Sender: FDA-Public Use
  Company Number: NVSC2020US163698

PATIENT
  Sex: Female

DRUGS (2)
  1. ENTRESTO [Suspect]
     Active Substance: SACUBITRIL\VALSARTAN
     Indication: SLEEP DISORDER
     Route: 065
  2. ENTRESTO [Suspect]
     Active Substance: SACUBITRIL\VALSARTAN
     Indication: CARDIAC FAILURE CONGESTIVE
     Dosage: 24/26MG BID (ONE IN THE MORNING AND SECOND IN THE EVENING)
     Route: 048
     Dates: start: 202003

REACTIONS (3)
  - Dizziness [Unknown]
  - Hypotension [Unknown]
  - Insomnia [Unknown]
